FAERS Safety Report 4409493-7 (Version None)
Quarter: 2004Q3

REPORT INFORMATION
  Report Type: 
  Country: None (occurrence: None)
  Receive Date: 20040727
  Receipt Date: 20040727
  Transmission Date: 20050211
  Serious: Yes (Hospitalization, Other)
  Sender: FDA-Public Use
  Company Number: None

PATIENT
  Age: 75 Year
  Sex: Male
  Weight: 98.4306 kg

DRUGS (12)
  1. DIGOXIN [Suspect]
     Indication: CARDIAC FAILURE CONGESTIVE
     Dosage: 0.125 OF DAILY/ CHRONIC
  2. ZAROXOLYN [Suspect]
     Indication: OEDEMA
     Dosage: X7-10 DAYS
  3. POTASSIUM GLUC [Concomitant]
  4. O2 [Concomitant]
  5. COUMADIN [Concomitant]
  6. PREDNISONE [Concomitant]
  7. HYDRALAZINE [Concomitant]
  8. SYNTHROID [Concomitant]
  9. AVAPRO [Concomitant]
  10. FLOMAX [Concomitant]
  11. CARDIZEM [Concomitant]
  12. ASPIRIN [Concomitant]

REACTIONS (7)
  - BRADYCARDIA [None]
  - DEHYDRATION [None]
  - HALO VISION [None]
  - NAUSEA [None]
  - THERAPEUTIC AGENT TOXICITY [None]
  - VOMITING [None]
  - XANTHOPSIA [None]
